FAERS Safety Report 17084523 (Version 2)
Quarter: 2019Q4

REPORT INFORMATION
  Report Type: Spontaneous
  Country: US (occurrence: US)
  Receive Date: 20191127
  Receipt Date: 20191205
  Transmission Date: 20200122
  Serious: No
  Sender: FDA-Public Use
  Company Number: US-009507513-1911USA011677

PATIENT
  Age: 42 Year
  Sex: Female
  Weight: 92.97 kg

DRUGS (3)
  1. NEXPLANON [Suspect]
     Active Substance: ETONOGESTREL
     Dosage: 1 ROD EVERY 3 YEARS
     Route: 059
     Dates: start: 20161129, end: 20191126
  2. NEXPLANON [Suspect]
     Active Substance: ETONOGESTREL
     Dosage: 1 ROD EVERY 3 YEARS
     Route: 059
     Dates: start: 20191126
  3. NEXPLANON [Suspect]
     Active Substance: ETONOGESTREL
     Dosage: 1 ROD EVERY 3 YEARS
     Route: 059
     Dates: start: 20191126, end: 20191126

REACTIONS (3)
  - Complication of device removal [Recovered/Resolved]
  - Product quality issue [Unknown]
  - Implant site fibrosis [Recovered/Resolved]

NARRATIVE: CASE EVENT DATE: 20191126
